FAERS Safety Report 9036454 (Version 1)
Quarter: 2013Q1

REPORT INFORMATION
  Report Type: Spontaneous
  Country: ES (occurrence: None)
  Receive Date: 20130114
  Receipt Date: 20130114
  Transmission Date: 20140127
  Serious: Yes (Hospitalization)
  Sender: FDA-Public Use
  Company Number: KAD201301-000020

PATIENT
  Age: 63 Year
  Sex: Male

DRUGS (2)
  1. RIBAVIRIN (RIBAVIRIN) [Suspect]
     Indication: HEPATITIS C
  2. PEGYLATED INTERFERON [Suspect]
     Indication: HEPATITIS C

REACTIONS (8)
  - Muscle haemorrhage [None]
  - Coagulopathy [None]
  - Acquired haemophilia [None]
  - Platelet count decreased [None]
  - Haemoglobin decreased [None]
  - Activated partial thromboplastin time prolonged [None]
  - Factor VIII inhibition [None]
  - Haemorrhage [None]
